FAERS Safety Report 13350182 (Version 1)
Quarter: 2017Q1

REPORT INFORMATION
  Report Type: Spontaneous
  Country: GB (occurrence: GB)
  Receive Date: 20170320
  Receipt Date: 20170320
  Transmission Date: 20170429
  Serious: Yes (Life-Threatening, Hospitalization)
  Sender: FDA-Public Use
  Company Number: GB-TEVA-749219ACC

PATIENT
  Age: 60 Year
  Sex: Female

DRUGS (2)
  1. AMLODIPINE [Concomitant]
     Active Substance: AMLODIPINE BESYLATE
  2. DOXAZOSIN [Suspect]
     Active Substance: DOXAZOSIN\DOXAZOSIN MESYLATE
     Indication: HYPERTENSION
     Dosage: 1 MILLIGRAM DAILY;
     Route: 048
     Dates: start: 20150429, end: 20160420

REACTIONS (7)
  - Tooth loss [Recovered/Resolved]
  - Muscular weakness [Recovered/Resolved]
  - Cardiac flutter [Recovered/Resolved]
  - Limb injury [Recovered/Resolved]
  - Facial bones fracture [Recovered/Resolved]
  - Loss of control of legs [Recovered/Resolved]
  - Fall [Recovered/Resolved]

NARRATIVE: CASE EVENT DATE: 20160419
